FAERS Safety Report 5086183-1 (Version None)
Quarter: 2006Q3

REPORT INFORMATION
  Report Type: 
  Country: None (occurrence: None)
  Receive Date: 20060818
  Receipt Date: 20060808
  Transmission Date: 20061208
  Serious: Yes (Hospitalization)
  Sender: FDA-Public Use
  Company Number: GXKR2006DE04617

PATIENT
  Age: 41 Year
  Sex: Female

DRUGS (8)
  1. TEGRETOL [Suspect]
     Dosage: 400 MG ; 800 MG ; 400 MG
  2. TEGRETOL [Suspect]
     Dosage: 400 MG ; 800 MG ; 400 MG
  3. TEGRETOL [Suspect]
     Dosage: 400 MG ; 800 MG ; 400 MG
  4. L-POLAMIDON (METHADONE HYDROCHLORIDE) [Suspect]
     Indication: DEPENDENCE
     Dosage: 75 MG
  5. ERHTYROMYCIN (NGX) (ERHTHROMYCIN) [Suspect]
     Indication: PNEUMONIA
     Dosage: 1500 MG ; 2000 MG
  6. METRONIDAZOLE [Suspect]
     Indication: PNEUMONIA
     Dosage: 900 MG
  7. DIAZEPAM [Concomitant]
  8. GABAPENTIN [Concomitant]

REACTIONS (9)
  - COORDINATION ABNORMAL [None]
  - DISORIENTATION [None]
  - DRUG INTERACTION [None]
  - DRUG TOXICITY [None]
  - FALL [None]
  - HAEMATOMA [None]
  - NYSTAGMUS [None]
  - PNEUMONIA [None]
  - SOMNOLENCE [None]
